FAERS Safety Report 5247583-X (Version None)
Quarter: 2007Q1

REPORT INFORMATION
  Report Type: 
  Country: None (occurrence: None)
  Receive Date: 20070227
  Receipt Date: 20070221
  Transmission Date: 20070707
  Serious: Yes (Other)
  Sender: FDA-Public Use
  Company Number: US-BAYER-200711057GDS

PATIENT
  Age: 15 Year
  Sex: Female

DRUGS (6)
  1. CIPROFLOXACIN [Suspect]
     Indication: URINARY TRACT INFECTION
     Route: 065
  2. CEFUROXIME [Concomitant]
     Indication: ANTIBIOTIC PROPHYLAXIS
     Route: 042
  3. PROMETHAZINE [Concomitant]
     Indication: NAUSEA
     Route: 065
  4. ONDANSETRON [Concomitant]
     Indication: NAUSEA
     Route: 065
  5. IBUPROFEN [Concomitant]
     Indication: ANALGESIC INTERVENTION SUPPORTIVE THERAPY
     Route: 065
  6. TRIMETHOPRIM + SULFAMETHOXAZOLE [Concomitant]
     Indication: RENAL FAILURE ACUTE
     Route: 065

REACTIONS (1)
  - NEPHRITIS INTERSTITIAL [None]
